FAERS Safety Report 24618747 (Version 2)
Quarter: 2024Q4

REPORT INFORMATION
  Report Type: Report from Study
  Country: BD (occurrence: BD)
  Receive Date: 20241114
  Receipt Date: 20241204
  Transmission Date: 20250114
  Serious: Yes (Death, Hospitalization)
  Sender: NOVARTIS
  Company Number: BD-002147023-NVSC2024BD218093

PATIENT
  Age: 65 Year
  Sex: Female
  Weight: 55 kg

DRUGS (1)
  1. CYCLOSPORINE [Suspect]
     Active Substance: CYCLOSPORINE
     Indication: Rheumatoid arthritis
     Dosage: 100 MG, BID
     Route: 048
     Dates: start: 202312, end: 20240709

REACTIONS (2)
  - Aplastic anaemia [Fatal]
  - Seizure [Fatal]
